FAERS Safety Report 18336804 (Version 1)
Quarter: 2020Q4

REPORT INFORMATION
  Report Type: Not Available
  Country: US (occurrence: US)
  Receive Date: 20201002
  Receipt Date: 20201002
  Transmission Date: 20210113
  Serious: No
  Sender: FDA-Public Use
  Company Number: US-NEUROCRINE BIOSCIENCES INC.-2020NBI03459

PATIENT
  Age: 61 Year
  Sex: Female

DRUGS (7)
  1. INGREZZA [Suspect]
     Active Substance: VALBENAZINE
     Indication: TARDIVE DYSKINESIA
     Route: 048
     Dates: start: 20200703, end: 202008
  2. PALIPERIDONE. [Concomitant]
     Active Substance: PALIPERIDONE
     Dates: start: 2018
  3. VITAMIN A [Concomitant]
     Active Substance: VITAMIN A
  4. CALCIUM [Concomitant]
     Active Substance: CALCIUM
  5. COGENTIN [Concomitant]
     Active Substance: BENZTROPINE MESYLATE
     Dosage: 10-14 DAYS.
  6. ALENDRONATE [Concomitant]
     Active Substance: ALENDRONATE SODIUM
  7. INGREZZA [Suspect]
     Active Substance: VALBENAZINE
     Route: 048
     Dates: start: 202008, end: 2020

REACTIONS (2)
  - Drooling [Unknown]
  - Drug ineffective [Unknown]

NARRATIVE: CASE EVENT DATE: 2020
